FAERS Safety Report 9303434 (Version 1)
Quarter: 2013Q2

REPORT INFORMATION
  Report Type: Spontaneous
  Country: US (occurrence: US)
  Receive Date: 20130522
  Receipt Date: 20130522
  Transmission Date: 20140414
  Serious: No
  Sender: FDA-Public Use
  Company Number: US-BAYER-2013-063414

PATIENT
  Age: 23 Year
  Sex: Male
  Weight: 84 kg

DRUGS (2)
  1. ALEVE CAPLET [Suspect]
     Indication: BACK PAIN
     Dosage: TAB
     Route: 048
  2. ALEVE CAPLET [Suspect]
     Indication: BACK PAIN
     Dosage: 4 DF, ONCE
     Route: 048
     Dates: start: 20130517, end: 20130517

REACTIONS (1)
  - Incorrect dose administered [None]
